FAERS Safety Report 22209031 (Version 1)
Quarter: 2023Q2

REPORT INFORMATION
  Report Type: Spontaneous
  Country: US (occurrence: US)
  Receive Date: 20230413
  Receipt Date: 20230413
  Transmission Date: 20230721
  Serious: No
  Sender: FDA-Public Use
  Company Number: US-BRISTOL-MYERS SQUIBB COMPANY-2023-052917

PATIENT
  Age: 71 Year
  Sex: Female

DRUGS (1)
  1. REVLIMID [Suspect]
     Active Substance: LENALIDOMIDE
     Indication: End stage renal disease
     Route: 048

REACTIONS (8)
  - Fatigue [Unknown]
  - Insomnia [Unknown]
  - Somnolence [Unknown]
  - Abdominal discomfort [Unknown]
  - Weight decreased [Unknown]
  - Flatulence [Unknown]
  - Irritable bowel syndrome [Unknown]
  - Off label use [Unknown]
